FAERS Safety Report 12492704 (Version 1)
Quarter: 2016Q2

REPORT INFORMATION
  Report Type: Not Available
  Country: None (occurrence: US)
  Receive Date: 20160623
  Receipt Date: 20160623
  Transmission Date: 20160815
  Serious: No
  Sender: FDA-Public Use
  Company Number: US-AKORN-15457

PATIENT
  Age: 65 Year
  Sex: Female

DRUGS (1)
  1. CLOBETASOL PROPIONATE CREAM [Suspect]
     Active Substance: CLOBETASOL PROPIONATE

REACTIONS (5)
  - Skin discolouration [None]
  - Dry skin [None]
  - Nail disorder [None]
  - Dyshidrotic eczema [None]
  - Application site pustules [None]
